FAERS Safety Report 19735447 (Version 4)
Quarter: 2022Q1

REPORT INFORMATION
  Report Type: Spontaneous
  Country: CH (occurrence: CH)
  Receive Date: 20210824
  Receipt Date: 20220210
  Transmission Date: 20220423
  Serious: Yes (Other)
  Sender: FDA-Public Use
  Company Number: None

PATIENT
  Age: 22 Year
  Sex: Female

DRUGS (3)
  1. FIASP [Suspect]
     Active Substance: INSULIN ASPART
     Indication: Type 1 diabetes mellitus
     Dosage: 28 IU, QD
     Route: 065
     Dates: start: 2020, end: 2021
  2. FIASP [Suspect]
     Active Substance: INSULIN ASPART
     Dosage: UNK
     Route: 065
  3. HUMALOG [Concomitant]
     Active Substance: INSULIN LISPRO
     Indication: Type 1 diabetes mellitus
     Dosage: UNK
     Route: 065

REACTIONS (3)
  - Diabetic ketoacidosis [Recovered/Resolved]
  - Product quality issue [Recovered/Resolved]
  - Lipodystrophy acquired [Unknown]

NARRATIVE: CASE EVENT DATE: 20210101
